FAERS Safety Report 16176304 (Version 1)
Quarter: 2019Q2

REPORT INFORMATION
  Report Type: Spontaneous
  Country: DE (occurrence: DE)
  Receive Date: 20190409
  Receipt Date: 20190409
  Transmission Date: 20190711
  Serious: Yes (Disabling)
  Sender: FDA-Public Use
  Company Number: DE-BAUSCH-BL-2019-010547

PATIENT
  Age: 68 Year
  Sex: Female

DRUGS (1)
  1. MYKOSERT [Suspect]
     Active Substance: SERTACONAZOLE NITRATE
     Indication: FUNGAL INFECTION
     Route: 065
     Dates: start: 20100917, end: 20100921

REACTIONS (5)
  - Neuritis [Recovering/Resolving]
  - Toxic neuropathy [Recovering/Resolving]
  - Pain [Recovering/Resolving]
  - Hypoaesthesia [Recovering/Resolving]
  - Erythema [Recovering/Resolving]

NARRATIVE: CASE EVENT DATE: 20100921
